FAERS Safety Report 10573674 (Version 1)
Quarter: 2014Q4

REPORT INFORMATION
  Report Type: Spontaneous
  Country: US (occurrence: US)
  Receive Date: 20141110
  Receipt Date: 20141110
  Transmission Date: 20150529
  Serious: No
  Sender: FDA-Public Use
  Company Number: US-TEVA-520640USA

PATIENT
  Sex: Male
  Weight: 59.02 kg

DRUGS (6)
  1. MODAFINIL. [Suspect]
     Active Substance: MODAFINIL
     Dosage: 100 MILLIGRAM DAILY;
  2. PROVIGIL [Suspect]
     Active Substance: MODAFINIL
     Indication: CIRCADIAN RHYTHM SLEEP DISORDER
  3. MODAFINIL. [Suspect]
     Active Substance: MODAFINIL
     Dosage: 100 MILLIGRAM DAILY;
  4. VITAMINS [Concomitant]
     Active Substance: VITAMINS
     Indication: SUPPLEMENTATION THERAPY
  5. PROVIGIL [Suspect]
     Active Substance: MODAFINIL
  6. NUVIGIL [Suspect]
     Active Substance: ARMODAFINIL

REACTIONS (2)
  - Tension [Recovered/Resolved]
  - Confusional state [Recovered/Resolved]
